FAERS Safety Report 15592131 (Version 2)
Quarter: 2018Q4

REPORT INFORMATION
  Report Type: Report from Study
  Country: AU (occurrence: AU)
  Receive Date: 20181107
  Receipt Date: 20181116
  Transmission Date: 20190205
  Serious: Yes (Hospitalization)
  Sender: FDA-Public Use
  Company Number: AU-ACTELION-A-CH2018-181162

PATIENT
  Age: 67 Year
  Sex: Female

DRUGS (3)
  1. VELETRI [Suspect]
     Active Substance: EPOPROSTENOL
     Indication: SYSTEMIC SCLERODERMA
     Dosage: UNK
     Route: 042
     Dates: start: 20150423
  2. SILDENAFIL. [Suspect]
     Active Substance: SILDENAFIL
     Indication: SYSTEMIC SCLERODERMA
     Dosage: UNK
     Route: 048
     Dates: start: 201410
  3. TRACLEER [Suspect]
     Active Substance: BOSENTAN
     Indication: SYSTEMIC SCLERODERMA
     Dosage: 125 MG, BID
     Route: 048
     Dates: start: 20150522

REACTIONS (1)
  - Hospitalisation [Unknown]
